FAERS Safety Report 20868368 (Version 1)
Quarter: 2022Q2

REPORT INFORMATION
  Report Type: Report from Study
  Country: RO (occurrence: RO)
  Receive Date: 20220524
  Receipt Date: 20220524
  Transmission Date: 20220721
  Serious: Yes (Hospitalization)
  Sender: FDA-Public Use
  Company Number: RO-NOVARTISPH-NVSC2022RO073714

PATIENT
  Age: 17 Year
  Sex: Male
  Weight: 55 kg

DRUGS (23)
  1. GLIVEC [Suspect]
     Active Substance: IMATINIB MESYLATE
     Indication: Acute lymphocytic leukaemia
     Dosage: 300 MG
     Route: 048
     Dates: start: 20170110
  2. TOPIRAMATE [Concomitant]
     Active Substance: TOPIRAMATE
     Indication: Product used for unknown indication
     Dosage: 25 MG, BID
     Route: 048
     Dates: start: 20200817, end: 20200904
  3. DEXAMETHASONE [Concomitant]
     Active Substance: DEXAMETHASONE
     Indication: Product used for unknown indication
     Dosage: 4 MG, BID
     Route: 042
     Dates: start: 20200817, end: 20200820
  4. DEXAMETHASONE [Concomitant]
     Active Substance: DEXAMETHASONE
     Dosage: 6 MG, BID
     Route: 042
     Dates: start: 20200825
  5. CONTROLOC [Concomitant]
     Active Substance: PANTOPRAZOLE SODIUM
     Indication: Product used for unknown indication
     Dosage: 20 MG, BID
     Route: 042
     Dates: start: 20200817, end: 20200904
  6. METAMIZOLE SODIUM [Concomitant]
     Active Substance: METAMIZOLE SODIUM
     Indication: Product used for unknown indication
     Dosage: UNK UNK, BID (1 VIAL)
     Route: 042
     Dates: start: 20200817, end: 20200825
  7. PERFALGAN [Concomitant]
     Active Substance: ACETAMINOPHEN
     Indication: Product used for unknown indication
     Dosage: 60 ML (AS NEEDED)
     Route: 042
     Dates: start: 20200817, end: 20200827
  8. ENALAPRIL [Concomitant]
     Active Substance: ENALAPRIL
     Indication: Product used for unknown indication
     Dosage: UNK, BID (1 VIAL)
     Route: 042
     Dates: start: 20200817, end: 20200827
  9. NIMOTOP [Concomitant]
     Active Substance: NIMODIPINE
     Indication: Product used for unknown indication
     Dosage: 30 MG, BID
     Route: 048
     Dates: start: 20200817, end: 20200904
  10. GRANISETRON [Concomitant]
     Active Substance: GRANISETRON
     Indication: Product used for unknown indication
     Dosage: 2 ML, TID
     Route: 042
     Dates: start: 20200817, end: 20200904
  11. FUROSEMIDE [Concomitant]
     Active Substance: FUROSEMIDE
     Indication: Product used for unknown indication
     Dosage: 1 ML (AS NEEDED)
     Route: 042
     Dates: start: 20200817, end: 20200831
  12. MANNITOL [Concomitant]
     Active Substance: MANNITOL
     Indication: Product used for unknown indication
     Dosage: 80 ML, Q8H
     Route: 042
     Dates: start: 20200817, end: 20200904
  13. AMINO ACIDS, SOURCE UNSPECIFIED [Concomitant]
     Active Substance: AMINO ACIDS, SOURCE UNSPECIFIED
     Indication: Product used for unknown indication
     Dosage: 500 ML, QD (FOR 8 HOURS)
     Route: 042
     Dates: start: 20200817, end: 20200904
  14. ALANYL GLUTAMINE [Concomitant]
     Active Substance: ALANYL GLUTAMINE
     Indication: Product used for unknown indication
     Dosage: 50 ML, QD (FOR 8 HOURS)
     Route: 042
     Dates: start: 20200817, end: 20200904
  15. FILGRASTIM [Concomitant]
     Active Substance: FILGRASTIM
     Indication: Product used for unknown indication
     Dosage: 48 UNK, QD (UI)
     Route: 058
     Dates: start: 20200817, end: 20200904
  16. ALBUMIN HUMAN [Concomitant]
     Active Substance: ALBUMIN HUMAN
     Indication: Product used for unknown indication
     Dosage: 100 ML (AS NEEDED)
     Route: 042
     Dates: start: 20200819, end: 20200904
  17. METOPROLOL [Concomitant]
     Active Substance: METOPROLOL
     Indication: Product used for unknown indication
     Dosage: 25 MG (AS NEEDED)
     Route: 048
     Dates: start: 20200824, end: 20200904
  18. SULFAMETHOXAZOLE\TRIMETHOPRIM [Concomitant]
     Active Substance: SULFAMETHOXAZOLE\TRIMETHOPRIM
     Indication: Product used for unknown indication
     Dosage: 400 MG/ 80 MG, 4 TABLET THREE TIMES DAILY
     Route: 048
     Dates: start: 20200824, end: 20200904
  19. COLISTIN [Concomitant]
     Active Substance: COLISTIN
     Indication: Product used for unknown indication
     Dosage: 1000000 UNK, TID (UI)
     Route: 042
     Dates: start: 20200825, end: 20200904
  20. DICLOFENAC [Concomitant]
     Active Substance: DICLOFENAC
     Indication: Product used for unknown indication
     Dosage: UNK (AS NEEDED)
     Route: 054
     Dates: start: 20200825, end: 20200904
  21. SALINE [Concomitant]
     Active Substance: SODIUM CHLORIDE
     Indication: Product used for unknown indication
     Dosage: UNK UNK, QD (SOLUTION)
     Route: 065
     Dates: start: 20200817, end: 20200904
  22. DEXTROSE [Concomitant]
     Active Substance: DEXTROSE
     Indication: Product used for unknown indication
     Dosage: UNK UNK, QD (SOLUTION)
     Route: 065
     Dates: start: 20200817, end: 20200904
  23. POTASSIUM CHLORIDE [Concomitant]
     Active Substance: POTASSIUM CHLORIDE
     Indication: Product used for unknown indication
     Dosage: UNK UNK, QD
     Route: 065
     Dates: start: 20200817, end: 20200904

REACTIONS (6)
  - Pyrexia [Recovered/Resolved]
  - Fusarium infection [Recovered/Resolved]
  - Mouth ulceration [Recovered/Resolved]
  - Neutropenia [Recovered/Resolved]
  - Sepsis [Recovered/Resolved]
  - Sinusitis fungal [Recovered/Resolved]

NARRATIVE: CASE EVENT DATE: 20200817
